FAERS Safety Report 7018370-7 (Version None)
Quarter: 2010Q3

REPORT INFORMATION
  Report Type: 
  Country: None (occurrence: None)
  Receive Date: 20100927
  Receipt Date: 20100913
  Transmission Date: 20110219
  Serious: No
  Sender: FDA-Public Use
  Company Number: 2010US005202

PATIENT
  Age: 62 Year
  Sex: Male

DRUGS (1)
  1. ALOXI [Suspect]
     Indication: PROPHYLAXIS OF NAUSEA AND VOMITING
     Dosage: 0.25MG SINGLE INTRAVENOUS
     Route: 042
     Dates: start: 20100803, end: 20100803

REACTIONS (1)
  - ARTERIOSPASM CORONARY [None]
